FAERS Safety Report 9920175 (Version 3)
Quarter: 2014Q1

REPORT INFORMATION
  Report Type: Spontaneous
  Country: US (occurrence: US)
  Receive Date: 20140224
  Receipt Date: 20140227
  Transmission Date: 20141002
  Serious: Yes (Death, Hospitalization, Other)
  Sender: FDA-Public Use
  Company Number: PHHY2014US009120

PATIENT
  Sex: Male

DRUGS (20)
  1. METHYLPHENIDATE [Suspect]
     Dosage: UNK UKN, UNK
  2. BACLOFEN INTRATHECAL [Suspect]
     Dosage: UNK UKN, UNK
     Dates: start: 20110302, end: 20121008
  3. BACLOFEN [Suspect]
     Dosage: UNK UKN, UNK
  4. METOPROLOL [Suspect]
     Dosage: UNK UKN, UNK
  5. BUSPIRONE [Suspect]
     Dosage: UNK UKN, UNK
  6. FOSINOPRIL [Suspect]
     Dosage: UNK UKN, UNK
  7. ISOSORBIDE DINITRATE [Suspect]
     Dosage: UNK UKN, UNK
  8. TAMSULOSIN [Suspect]
     Dosage: UNK UKN, UNK
  9. COPAXONE [Suspect]
     Indication: MULTIPLE SCLEROSIS
     Dosage: UNK UKN, UNK
     Dates: start: 20130421
  10. SINEMET [Suspect]
     Dosage: UNK UKN, UNK
  11. SINEMET [Suspect]
     Dosage: 2.5 MG, UNK
  12. MORPHINE [Suspect]
     Dosage: 144 UG/DAY
     Route: 037
  13. BUPIVACAINE [Suspect]
     Dosage: 1.4 MG/DAY
     Route: 037
  14. PLAVIX [Suspect]
     Dosage: UNK UKN, UNK
  15. LASIX [Suspect]
     Dosage: UNK UKN, UNK
  16. NIASPAN [Suspect]
     Dosage: UNK UKN, UNK
  17. PROTONIX [Suspect]
     Dosage: UNK UKN, UNK
  18. SEROQUEL [Suspect]
     Dosage: UNK UKN, UNK
  19. RANEXA [Suspect]
     Dosage: UNK UKN, UNK
  20. LORTAB [Suspect]
     Dosage: UNK UKN, UNK

REACTIONS (11)
  - Multiple sclerosis relapse [Fatal]
  - Condition aggravated [Fatal]
  - Performance status decreased [Fatal]
  - Speech disorder [Fatal]
  - Back pain [Fatal]
  - Abasia [Fatal]
  - Urinary retention [Fatal]
  - Asthenia [Fatal]
  - Pain [Fatal]
  - Therapeutic response decreased [Fatal]
  - Somnolence [Fatal]
